FAERS Safety Report 4767381-0 (Version None)
Quarter: 2005Q3

REPORT INFORMATION
  Report Type: 
  Country: None (occurrence: None)
  Receive Date: 20050909
  Receipt Date: 20050825
  Transmission Date: 20060218
  Serious: Yes (Hospitalization)
  Sender: FDA-Public Use
  Company Number: 189780

PATIENT
  Age: 54 Year
  Sex: Male
  Weight: 68.9467 kg

DRUGS (7)
  1. AVONEX [Suspect]
     Indication: MULTIPLE SCLEROSIS
     Dosage: 30 UG; QW; IM
     Route: 030
     Dates: start: 20010101, end: 20030101
  2. AVONEX [Suspect]
     Indication: MULTIPLE SCLEROSIS
     Dosage: 30 UG; QW; IM
     Route: 030
     Dates: start: 20031101
  3. RISPERDAL [Concomitant]
  4. LIPITOR [Concomitant]
  5. LEXAPRO [Concomitant]
  6. LANOXIN [Concomitant]
  7. ALDACTONE [Concomitant]

REACTIONS (10)
  - BLINDNESS [None]
  - CEREBROVASCULAR ACCIDENT [None]
  - CONCUSSION [None]
  - CONDITION AGGRAVATED [None]
  - CONTUSION [None]
  - DIZZINESS [None]
  - FALL [None]
  - INFECTION [None]
  - MULTIPLE SCLEROSIS [None]
  - WRIST FRACTURE [None]
